FAERS Safety Report 4370085-X (Version None)
Quarter: 2004Q2

REPORT INFORMATION
  Report Type: 
  Country: None (occurrence: None)
  Receive Date: 20040527
  Receipt Date: 20040506
  Transmission Date: 20050107
  Serious: Yes (Other)
  Sender: FDA-Public Use
  Company Number: JP_040402973

PATIENT
  Age: 27 Year
  Sex: Male
  Weight: 68 kg

DRUGS (9)
  1. ZYPREXA [Suspect]
     Indication: SCHIZOPHRENIA
     Dosage: 20 MG DAY
     Dates: start: 20020911
  2. LULLAN (PEROSPIRONE HYDROCHLORIDE) [Concomitant]
  3. HALOPERIDOL DECANOATE [Concomitant]
  4. ANKINETON (BIPERIDEN HYDROCHLORIDE) [Concomitant]
  5. RESTAS (FLUTOPRAZEPAM) [Concomitant]
  6. MARZULENE S [Concomitant]
  7. SELBEX (TEPRENONE) [Concomitant]
  8. MAGNESIUM OXIDE [Concomitant]
  9. FAMOTIDINE [Concomitant]

REACTIONS (7)
  - BLOOD CREATINE PHOSPHOKINASE INCREASED [None]
  - BLOOD CREATININE INCREASED [None]
  - BLOOD UREA INCREASED [None]
  - ELECTROCARDIOGRAM ABNORMAL [None]
  - GRAND MAL CONVULSION [None]
  - PYREXIA [None]
  - URINE OUTPUT INCREASED [None]
